FAERS Safety Report 8151618-4 (Version None)
Quarter: 2012Q1

REPORT INFORMATION
  Report Type: 
  Country: None (occurrence: None)
  Receive Date: 20120220
  Receipt Date: 20120209
  Transmission Date: 20120608
  Serious: Yes (Other)
  Sender: FDA-Public Use
  Company Number: US-ASTRAZENECA-2012SE09203

PATIENT
  Age: 70 Year
  Sex: Female
  Weight: 61.2 kg

DRUGS (3)
  1. LIPITOR [Concomitant]
  2. CRESTOR [Suspect]
     Route: 048
     Dates: start: 20110101
  3. ZOCOR [Concomitant]

REACTIONS (13)
  - DIABETES MELLITUS [None]
  - MUSCULOSKELETAL PAIN [None]
  - MUSCULOSKELETAL STIFFNESS [None]
  - GRIP STRENGTH DECREASED [None]
  - HYPERTENSION [None]
  - ARTHRALGIA [None]
  - OSTEOARTHRITIS [None]
  - MUSCLE SPASMS [None]
  - LEUKAEMIA [None]
  - GAIT DISTURBANCE [None]
  - BACK PAIN [None]
  - PAIN IN EXTREMITY [None]
  - WRONG TECHNIQUE IN DRUG USAGE PROCESS [None]
